FAERS Safety Report 7247704-3 (Version None)
Quarter: 2011Q1

REPORT INFORMATION
  Report Type: 
  Country: None (occurrence: None)
  Receive Date: 20110127
  Receipt Date: 20110124
  Transmission Date: 20110831
  Serious: Yes (Other)
  Sender: FDA-Public Use
  Company Number: US-MERCK-1101USA02484

PATIENT
  Sex: Male

DRUGS (2)
  1. ZOCOR [Suspect]
     Route: 048
  2. ZOCOR [Suspect]
     Route: 048
     Dates: start: 20070101

REACTIONS (2)
  - MYOCARDIAL INFARCTION [None]
  - HYPERSENSITIVITY [None]
